FAERS Safety Report 18742227 (Version 1)
Quarter: 2021Q1

REPORT INFORMATION
  Report Type: Report from Study
  Country: US (occurrence: US)
  Receive Date: 20210114
  Receipt Date: 20210114
  Transmission Date: 20210419
  Serious: Yes (Other)
  Sender: FDA-Public Use
  Company Number: US-JNJFOC-20210102956

PATIENT
  Sex: Male

DRUGS (2)
  1. SELEXIPAG [Suspect]
     Active Substance: SELEXIPAG
     Indication: PULMONARY ARTERIAL HYPERTENSION
     Dosage: EVERY EVENING
     Route: 048
     Dates: start: 20200912
  2. SELEXIPAG [Suspect]
     Active Substance: SELEXIPAG
     Dosage: EVERY EVENING
     Route: 048
     Dates: start: 20200912

REACTIONS (4)
  - Abdominal pain upper [Unknown]
  - Diarrhoea [Unknown]
  - Neoplasm malignant [Unknown]
  - Headache [Unknown]
